FAERS Safety Report 8133153-2 (Version None)
Quarter: 2012Q1

REPORT INFORMATION
  Report Type: 
  Country: None (occurrence: None)
  Receive Date: 20120213
  Receipt Date: 20120209
  Transmission Date: 20120608
  Serious: Yes (Death, Life-Threatening, Other)
  Sender: FDA-Public Use
  Company Number: PHHY2011JP103676

PATIENT
  Age: 65 Year
  Sex: Female

DRUGS (5)
  1. INCHIN-GOREI-SAN [Concomitant]
     Dosage: 5 MG, UNK
     Route: 048
  2. HOCHUUEKKITOU [Concomitant]
     Dosage: 5 MG, UNK
     Route: 048
  3. ZOMETA [Suspect]
     Indication: METASTASES TO BONE
     Dosage: 4 MG, (PER ADMINISTRATION)
     Route: 041
     Dates: start: 20100401, end: 20111109
  4. LOXONIN [Concomitant]
     Dosage: 180 MG, UNK
     Route: 048
  5. SAIKOKEISHITOU [Concomitant]
     Dosage: 7.5 MG, UNK
     Route: 048

REACTIONS (6)
  - MULTI-ORGAN FAILURE [None]
  - NEOPLASM MALIGNANT [None]
  - NEOPLASM PROGRESSION [None]
  - RENAL IMPAIRMENT [None]
  - DEHYDRATION [None]
  - METASTASES TO LYMPH NODES [None]
